FAERS Safety Report 16529070 (Version 3)
Quarter: 2019Q4

REPORT INFORMATION
  Report Type: Spontaneous
  Country: US (occurrence: US)
  Receive Date: 20190703
  Receipt Date: 20191111
  Transmission Date: 20200122
  Serious: Yes (Other)
  Sender: FDA-Public Use
  Company Number: US-INCYTE CORPORATION-2019IN006460

PATIENT

DRUGS (3)
  1. JAKAFI [Suspect]
     Active Substance: RUXOLITINIB
     Indication: POLYCYTHAEMIA VERA
     Dosage: 20 MILLIGRAM, BID
     Route: 048
  2. JAKAFI [Suspect]
     Active Substance: RUXOLITINIB
     Dosage: 10 MILLIGRAM, BID
     Route: 048
  3. JAKAFI [Suspect]
     Active Substance: RUXOLITINIB
     Indication: POLYCYTHAEMIA
     Dosage: 20 MILLIGRAM, BID
     Route: 048
     Dates: start: 20190207, end: 20190722

REACTIONS (10)
  - Weight increased [Unknown]
  - Blood count abnormal [Unknown]
  - Gallbladder enlargement [Unknown]
  - Chest discomfort [Unknown]
  - Pruritus [Recovering/Resolving]
  - Pain [Unknown]
  - Platelet count decreased [Unknown]
  - Asthenia [Recovering/Resolving]
  - Abdominal distension [Unknown]
  - Red blood cell count decreased [Unknown]
